FAERS Safety Report 6413744-7 (Version None)
Quarter: 2009Q4

REPORT INFORMATION
  Report Type: 
  Country: None (occurrence: None)
  Receive Date: 20091022
  Receipt Date: 20091022
  Transmission Date: 20100525
  Serious: Yes (Hospitalization, Disabling, Other)
  Sender: FDA-Public Use
  Company Number: None

PATIENT
  Age: 52 Year
  Sex: Male
  Weight: 75.2971 kg

DRUGS (2)
  1. ABILIFY [Suspect]
     Indication: BIPOLAR DISORDER
     Dosage: 15MG. 1 DAILY ORAL
     Route: 048
     Dates: start: 20090301, end: 20090601
  2. PRISTIQ [Suspect]
     Indication: DEPRESSION
     Dosage: 100MG. 1 DAILY ORAL
     Route: 048
     Dates: start: 20090701, end: 20090801

REACTIONS (8)
  - BLINDNESS [None]
  - CONVULSION [None]
  - DYSKINESIA [None]
  - FALL [None]
  - IMPAIRED DRIVING ABILITY [None]
  - TONGUE DISORDER [None]
  - TREMOR [None]
  - WEIGHT DECREASED [None]
